FAERS Safety Report 15669057 (Version 1)
Quarter: 2018Q4

REPORT INFORMATION
  Report Type: Spontaneous
  Country: BR (occurrence: BR)
  Receive Date: 20181129
  Receipt Date: 20181129
  Transmission Date: 20190205
  Serious: Yes (Congenital Anomaly, Other)
  Sender: FDA-Public Use
  Company Number: BR-STRIDES ARCOLAB LIMITED-2018SP010129

PATIENT
  Age: 5 Month
  Sex: Male
  Weight: 3 kg

DRUGS (2)
  1. ISENTRESS [Suspect]
     Active Substance: RALTEGRAVIR POTASSIUM
     Indication: PRODUCT USED FOR UNKNOWN INDICATION
     Dosage: 800 MG PER DAY (MATERNAL DOSE)
     Route: 064
  2. LAMIVUDINE AND ZIDOVUDINE TABLETS [Suspect]
     Active Substance: LAMIVUDINE\ZIDOVUDINE
     Indication: PRODUCT USED FOR UNKNOWN INDICATION
     Dosage: 900 MG/DAY (MATERNAL DOSE)
     Route: 064

REACTIONS (2)
  - Foetal exposure during pregnancy [Unknown]
  - Atrial septal defect [Unknown]

NARRATIVE: CASE EVENT DATE: 20180228
